FAERS Safety Report 4349262-X (Version None)
Quarter: 2004Q2

REPORT INFORMATION
  Report Type: 
  Country: None (occurrence: None)
  Receive Date: 20040428
  Receipt Date: 20030417
  Transmission Date: 20050107
  Serious: Yes (Hospitalization, Other)
  Sender: FDA-Public Use
  Company Number: ES-BRISTOL-MYERS SQUIBB COMPANY-12245007

PATIENT
  Age: 55 Year
  Sex: Male

DRUGS (8)
  1. ATAZANAVIR [Suspect]
     Indication: HIV INFECTION
     Route: 048
     Dates: start: 20021029, end: 20030227
  2. STAVUDINE [Suspect]
     Indication: HIV INFECTION
     Route: 048
     Dates: start: 19970401, end: 20030227
  3. TENOFOVIR [Suspect]
     Indication: HIV INFECTION
     Route: 048
     Dates: start: 20021029, end: 20030227
  4. GLYBURIDE [Concomitant]
     Route: 048
     Dates: start: 19980401
  5. CO-TRIMOXAZOLE [Concomitant]
     Dosage: 800/160 MG
     Route: 048
     Dates: start: 20001102
  6. LEUCOVORIN CALCIUM [Concomitant]
     Route: 048
     Dates: start: 20001102
  7. PRAVASTATIN SODIUM [Concomitant]
     Route: 048
     Dates: start: 19980701, end: 20030227
  8. GEMFIBROZIL [Concomitant]
     Route: 048
     Dates: start: 19981202, end: 20030227

REACTIONS (6)
  - BLOOD PH DECREASED [None]
  - GUILLAIN-BARRE SYNDROME [None]
  - HEPATOTOXICITY [None]
  - HYPERBILIRUBINAEMIA [None]
  - LIPOATROPHY [None]
  - RESPIRATORY FAILURE [None]
